FAERS Safety Report 20615873 (Version 4)
Quarter: 2023Q1

REPORT INFORMATION
  Report Type: Report from Study
  Country: US (occurrence: US)
  Receive Date: 20220321
  Receipt Date: 20230207
  Transmission Date: 20230418
  Serious: Yes (Death)
  Sender: FDA-Public Use
  Company Number: US-002147023-NVSC2022US063103

PATIENT
  Sex: Female

DRUGS (1)
  1. PROMACTA [Suspect]
     Active Substance: ELTROMBOPAG OLAMINE
     Indication: Product used for unknown indication
     Dosage: UNK
     Route: 065

REACTIONS (8)
  - Death [Fatal]
  - Cardiac disorder [Unknown]
  - Stress [Unknown]
  - Renal disorder [Unknown]
  - Fluid retention [Unknown]
  - Contusion [Unknown]
  - Dyspnoea [Unknown]
  - Headache [Unknown]
